FAERS Safety Report 23949791 (Version 1)
Quarter: 2024Q2

REPORT INFORMATION
  Report Type: Spontaneous
  Country: US (occurrence: None)
  Receive Date: 20240606
  Receipt Date: 20240606
  Transmission Date: 20240716
  Serious: Yes (Hospitalization)
  Sender: FDA-Public Use
  Company Number: None

PATIENT
  Age: 67 Year
  Sex: Female
  Weight: 76.05 kg

DRUGS (11)
  1. OZEMPIC [Suspect]
     Active Substance: SEMAGLUTIDE
     Dosage: OTHER QUANTITY : 1 INJECTION(S)?OTHER FREQUENCY : WEEKLY?
     Route: 058
     Dates: start: 20230601, end: 20240513
  2. ALOGLIPTIN [Concomitant]
  3. aspirin [Concomitant]
  4. cartia [Concomitant]
  5. PLAVIX [Concomitant]
     Active Substance: CLOPIDOGREL BISULFATE
  6. LEXAPRO [Concomitant]
     Active Substance: ESCITALOPRAM OXALATE
  7. LISINOPRIL [Concomitant]
  8. Pepcid [Concomitant]
  9. CRESTOR [Concomitant]
     Active Substance: ROSUVASTATIN CALCIUM
  10. PIOGLITAZONE [Concomitant]
  11. TYLENOL [Concomitant]

REACTIONS (9)
  - Post procedural complication [None]
  - Abdominal hernia repair [None]
  - Intentional dose omission [None]
  - Nausea [None]
  - Vomiting [None]
  - Therapeutic product effect incomplete [None]
  - Intestinal obstruction [None]
  - Ileus [None]
  - Discomfort [None]

NARRATIVE: CASE EVENT DATE: 20240524
